FAERS Safety Report 13176334 (Version 2)
Quarter: 2017Q1

REPORT INFORMATION
  Report Type: Spontaneous
  Country: CH (occurrence: CH)
  Receive Date: 20170201
  Receipt Date: 20170202
  Transmission Date: 20170428
  Serious: Yes (Hospitalization)
  Sender: FDA-Public Use
  Company Number: CH-BAYER-2017-014503

PATIENT
  Age: 76 Year
  Sex: Male

DRUGS (14)
  1. MARCUMAR [Interacting]
     Active Substance: PHENPROCOUMON
     Dosage: 1 DF, UNK
     Route: 048
     Dates: end: 20170103
  2. ZYLORIC [Concomitant]
     Active Substance: ALLOPURINOL
  3. NEBILET [Concomitant]
     Active Substance: NEBIVOLOL
     Dosage: UNK
  4. TOREM [Concomitant]
     Active Substance: TORSEMIDE
  5. ATORVASTATIN [Concomitant]
     Active Substance: ATORVASTATIN
  6. INSULIN [Concomitant]
     Active Substance: INSULIN NOS
  7. TILUR [Interacting]
     Active Substance: ACEMETACIN
     Indication: OSTEOARTHRITIS
     Dosage: 90 MG, QOD
     Route: 048
     Dates: start: 201611, end: 20170103
  8. PRADIF [Concomitant]
     Active Substance: TAMSULOSIN HYDROCHLORIDE
  9. PANTOPRAZOLE [Concomitant]
     Active Substance: PANTOPRAZOLE SODIUM
  10. MOVICOL [Concomitant]
     Active Substance: POLYETHYLENE GLYCOL 3350\POTASSIUM CHLORIDE\SODIUM BICARBONATE\SODIUM CHLORIDE
  11. ASPIRIN CARDIO 100 MG [Suspect]
     Active Substance: ASPIRIN
     Indication: CORONARY ARTERY DISEASE
     Dosage: 100 MG, QD
     Route: 048
  12. SARIDON N 200 [Interacting]
     Active Substance: IBUPROFEN SODIUM
     Indication: OSTEOARTHRITIS
     Dosage: 600 MG, BID
     Route: 048
     Dates: start: 201609, end: 20170103
  13. ROCALTROL [Concomitant]
     Active Substance: CALCITRIOL
  14. ELTROXIN [Concomitant]
     Active Substance: LEVOTHYROXINE

REACTIONS (8)
  - Haemorrhagic anaemia [Recovered/Resolved]
  - Potentiating drug interaction [Recovered/Resolved]
  - Oedema peripheral [Recovered/Resolved]
  - Potentiating drug interaction [Recovered/Resolved]
  - Cardiac failure [Recovered/Resolved]
  - Melaena [Recovered/Resolved]
  - Oedema [Recovered/Resolved]
  - Acute kidney injury [Recovered/Resolved]

NARRATIVE: CASE EVENT DATE: 201609
